FAERS Safety Report 7819972-8 (Version None)
Quarter: 2011Q4

REPORT INFORMATION
  Report Type: 
  Country: None (occurrence: None)
  Receive Date: 20111018
  Receipt Date: 20111012
  Transmission Date: 20120403
  Serious: Yes (Other)
  Sender: FDA-Public Use
  Company Number: GR-GENZYME-CAMP-1001952

PATIENT
  Age: 65 Year
  Sex: Female

DRUGS (4)
  1. BACTRIMEL [Concomitant]
     Indication: PRODUCT USED FOR UNKNOWN INDICATION
     Dosage: UNK
     Route: 065
  2. ZOVIRAX [Concomitant]
     Indication: HERPES ZOSTER
     Dosage: 800 MG X 2
     Route: 065
  3. CAMPATH [Suspect]
     Indication: CHRONIC LYMPHOCYTIC LEUKAEMIA
     Dosage: 30 MG, 3X/W UP TO MAXIMUM OF 12 WEEKS
     Route: 042
  4. FUNGUSTATIN [Concomitant]
     Indication: PRODUCT USED FOR UNKNOWN INDICATION
     Dosage: 400 X 2
     Route: 065

REACTIONS (1)
  - LEUKOENCEPHALOPATHY [None]
